FAERS Safety Report 26120658 (Version 2)
Quarter: 2025Q4

REPORT INFORMATION
  Report Type: Spontaneous
  Country: EU (occurrence: EU)
  Receive Date: 20251204
  Receipt Date: 20251212
  Transmission Date: 20260117
  Serious: Yes (Hospitalization)
  Sender: TEVA
  Company Number: EU-TEVA-VS-3398756

PATIENT
  Age: 8 Year
  Sex: Male

DRUGS (2)
  1. METHOTREXATE [Suspect]
     Active Substance: METHOTREXATE
     Indication: Psoriasis
     Route: 048
  2. FOLIC ACID [Concomitant]
     Active Substance: FOLIC ACID
     Indication: Vitamin supplementation
     Route: 065

REACTIONS (8)
  - Mucocutaneous disorder [Recovering/Resolving]
  - Inappropriate schedule of product administration [Unknown]
  - Toxicity to various agents [Recovering/Resolving]
  - Rash erythematous [Recovering/Resolving]
  - Skin lesion [Recovering/Resolving]
  - Stomatitis [Recovering/Resolving]
  - Lymphopenia [Recovering/Resolving]
  - Hypoalbuminaemia [Recovering/Resolving]
